FAERS Safety Report 5107785-X (Version None)
Quarter: 2006Q3

REPORT INFORMATION
  Report Type: 
  Country: None (occurrence: None)
  Receive Date: 20060919
  Receipt Date: 20060905
  Transmission Date: 20061208
  Serious: Yes (Death, Hospitalization)
  Sender: FDA-Public Use
  Company Number: US-JNJFOC-20060902177

PATIENT
  Age: 32 Year
  Sex: Male

DRUGS (2)
  1. ACETAMINOPHEN/DIPHENHYDRAMINE [Suspect]
     Indication: SUICIDE ATTEMPT
     Route: 048
  2. ACETAMINOPHEN/OXYCODONE [Suspect]
     Indication: SUICIDE ATTEMPT
     Route: 048

REACTIONS (6)
  - DRUG TOXICITY [None]
  - HEPATIC ENCEPHALOPATHY [None]
  - HEPATIC FAILURE [None]
  - HYPERAMMONAEMIA [None]
  - INTENTIONAL DRUG MISUSE [None]
  - RENAL FAILURE [None]
